FAERS Safety Report 6209428-0 (Version None)
Quarter: 2009Q2

REPORT INFORMATION
  Report Type: 
  Country: None (occurrence: None)
  Receive Date: 20090601
  Receipt Date: 20090521
  Transmission Date: 20091009
  Serious: Yes (Other)
  Sender: FDA-Public Use
  Company Number: CA-ROCHE-634293

PATIENT

DRUGS (3)
  1. CELLCEPT [Suspect]
     Indication: DRUG USE FOR UNKNOWN INDICATION
     Dosage: ROUTE:VIA GASTRIC TUBE. START DATE: 2009
     Route: 048
  2. CELLCEPT [Suspect]
     Dosage: DOSAGE INCREASED
     Route: 048
  3. CELLCEPT [Suspect]
     Dosage: DOSAGE INCREASED, FREQUENCY REPORTED AS : TWICE DAILY
     Route: 048

REACTIONS (1)
  - MALABSORPTION [None]
